FAERS Safety Report 17468260 (Version 4)
Quarter: 2020Q4

REPORT INFORMATION
  Report Type: Spontaneous
  Country: JP (occurrence: JP)
  Receive Date: 20200227
  Receipt Date: 20201210
  Transmission Date: 20210113
  Serious: Yes (Other)
  Sender: FDA-Public Use
  Company Number: JP-AMGEN-JPNSP2020010591

PATIENT
  Age: 70 Year
  Sex: Male

DRUGS (2)
  1. REPATHA [Suspect]
     Active Substance: EVOLOCUMAB
     Indication: LOW DENSITY LIPOPROTEIN INCREASED
     Dosage: 420 MILLIGRAM, Q6WK
     Route: 058
     Dates: end: 20200203
  2. REPATHA [Suspect]
     Active Substance: EVOLOCUMAB
     Indication: TYPE IIA HYPERLIPIDAEMIA
     Dosage: UNK
     Route: 058

REACTIONS (2)
  - Cardiac failure acute [Not Recovered/Not Resolved]
  - Off label use [Unknown]
